FAERS Safety Report 5591176-1 (Version None)
Quarter: 2008Q1

REPORT INFORMATION
  Report Type: 
  Country: None (occurrence: None)
  Receive Date: 20080115
  Receipt Date: 20080110
  Transmission Date: 20080703
  Serious: Yes (Hospitalization)
  Sender: FDA-Public Use
  Company Number: HQWYE200117OCT06

PATIENT
  Sex: Female
  Weight: 65 kg

DRUGS (18)
  1. RAPAMUNE [Suspect]
     Indication: PROPHYLAXIS AGAINST TRANSPLANT REJECTION
     Route: 048
     Dates: start: 20050114, end: 20061012
  2. TACROLIMUS [Suspect]
     Indication: PROPHYLAXIS AGAINST TRANSPLANT REJECTION
     Route: 048
  3. PREDNISONE TAB [Suspect]
     Indication: PROPHYLAXIS AGAINST TRANSPLANT REJECTION
     Route: 048
  4. LOPRESSOR [Concomitant]
     Indication: HYPERTENSION
     Route: 048
  5. CLARITIN [Concomitant]
     Route: 048
  6. LANTUS [Concomitant]
     Indication: TYPE 1 DIABETES MELLITUS
     Dosage: 20 UNIT EVERY 1 DAY
     Route: 058
     Dates: end: 20061001
  7. LANTUS [Concomitant]
     Dosage: 27 UNIT EVERY 1 DAY
     Route: 058
     Dates: start: 20061001
  8. NOVOLOG [Concomitant]
     Indication: TYPE 1 DIABETES MELLITUS
     Dosage: 2 UNIT EVERY 1 DAY
     Route: 058
  9. DOXYCYCLINE [Concomitant]
     Route: 048
  10. CITALOPRAM [Concomitant]
     Route: 048
  11. LIPITOR [Concomitant]
     Indication: HYPERLIPIDAEMIA
     Route: 048
  12. NORVASC [Concomitant]
     Indication: HYPERTENSION
     Route: 048
     Dates: end: 20061001
  13. NORVASC [Concomitant]
     Route: 048
     Dates: start: 20061001
  14. FLUCONAZOLE [Concomitant]
     Route: 048
  15. CALCIUM PHOSPHATE/CALCIUM SODIUM LACTATE/ERGOCALCIFEROL [Concomitant]
     Route: 048
  16. MYCELEX [Concomitant]
     Route: 002
  17. VALCYTE [Concomitant]
     Route: 048
  18. ZENAPAX [Suspect]
     Indication: PROPHYLAXIS AGAINST TRANSPLANT REJECTION
     Dosage: UNSPECIFIED
     Route: 048

REACTIONS (1)
  - TRANSPLANT REJECTION [None]
